FAERS Safety Report 9022055 (Version 2)
Quarter: 2014Q1

REPORT INFORMATION
  Report Type: Spontaneous
  Country: IT (occurrence: IT)
  Receive Date: 20130118
  Receipt Date: 20140110
  Transmission Date: 20141002
  Serious: Yes (Hospitalization)
  Sender: FDA-Public Use
  Company Number: IT-TEVA-380634ISR

PATIENT
  Age: 69 Year
  Sex: Male

DRUGS (1)
  1. OXALIPLATINO TEVA [Suspect]
     Indication: INTESTINAL ADENOCARCINOMA
     Dosage: CONCENTRATE FOR SOLUTION FOR INFUSION
     Dates: start: 20121217, end: 20121217

REACTIONS (3)
  - Dyspnoea [Recovered/Resolved]
  - Presyncope [Recovered/Resolved]
  - Malaise [Recovered/Resolved]
